FAERS Safety Report 10273375 (Version 1)
Quarter: 2014Q1

REPORT INFORMATION
  Report Type: Spontaneous
  Country: US (occurrence: None)
  Receive Date: 20140306
  Receipt Date: 20140306
  Transmission Date: 20141002
  Serious: Yes (Hospitalization)
  Sender: FDA-Public Use
  Company Number: 163-21880-13081107

PATIENT
  Age: 70 Year
  Sex: Female
  Weight: 88.5 kg

DRUGS (11)
  1. REVLIMID [Suspect]
     Indication: PLASMA CELL MYELOMA
     Route: 048
     Dates: start: 200812
  2. COLACE (DOCUSATE SODIUM) (UNKNOWN) [Concomitant]
  3. SPIRIVA (TIOTROPIUM BROMIDE) (UNKNOWN) [Concomitant]
  4. ADVAIR DISKUS (SERETIDE MITE) (UNKNOWN) [Concomitant]
  5. CYMBALTA [Concomitant]
  6. BENZONATATE (BENZONATATE) (UNKNOWN) [Concomitant]
  7. TRAMADOL HCL (TRAMADOL HYDROCHLORIDE) (UNKNOWN) [Concomitant]
  8. DESYREL (TRAZONDONE HYDROCHLORIDE) (UNKNOWN) [Concomitant]
  9. PROZAC (FLUOXETINE HYDROCHLORIDE) (UNKNOWN) [Concomitant]
  10. MULTIPLE VITAMINS ESSENTIAL (UNKNOWN) [Concomitant]
  11. LASIX (FUROSEMIDE) (UNKNOWN) [Concomitant]

REACTIONS (1)
  - Thrombosis [None]
